FAERS Safety Report 8111191-3 (Version None)
Quarter: 2012Q1

REPORT INFORMATION
  Report Type: 
  Country: None (occurrence: None)
  Receive Date: 20120203
  Receipt Date: 20110607
  Transmission Date: 20120608
  Serious: No
  Sender: FDA-Public Use
  Company Number: US-GLAXOSMITHKLINE-A0931361A

PATIENT
  Age: 51 Year
  Sex: Female
  Weight: 90 kg

DRUGS (4)
  1. LYRICA [Suspect]
     Indication: CONVULSION
     Route: 048
     Dates: start: 19990101
  2. DILANTIN [Suspect]
     Indication: CONVULSION
     Route: 048
     Dates: start: 19990101
  3. NONE [Concomitant]
  4. LAMICTAL [Suspect]
     Route: 048

REACTIONS (2)
  - ACCIDENT [None]
  - HYPERTENSION [None]
